FAERS Safety Report 22240473 (Version 15)
Quarter: 2024Q1

REPORT INFORMATION
  Report Type: Spontaneous
  Country: US (occurrence: US)
  Receive Date: 20230421
  Receipt Date: 20240123
  Transmission Date: 20240410
  Serious: No
  Sender: FDA-Public Use
  Company Number: US-VERTEX PHARMACEUTICALS-2023-005381

PATIENT
  Sex: Female

DRUGS (13)
  1. SYMDEKO [Suspect]
     Active Substance: IVACAFTOR\TEZACAFTOR
     Indication: Cystic fibrosis
     Dosage: UNK
     Route: 048
  2. SYMDEKO [Suspect]
     Active Substance: IVACAFTOR\TEZACAFTOR
     Dosage: HALF DOSE OF BLUE TAB (150 MG IVACAFTOR)
     Route: 048
     Dates: start: 2023
  3. SYMDEKO [Suspect]
     Active Substance: IVACAFTOR\TEZACAFTOR
     Dosage: 1/2 BLUE IVACAFTOR TAB WITH FULL YELLOW TAB
     Route: 048
     Dates: start: 2023
  4. SYMDEKO [Suspect]
     Active Substance: IVACAFTOR\TEZACAFTOR
     Dosage: BACK ON FULL DOSE
     Route: 048
     Dates: start: 2023
  5. MIRTAZAPINE [Suspect]
     Active Substance: MIRTAZAPINE
     Indication: Anxiety
     Dosage: UNK
     Route: 065
  6. CREON [Suspect]
     Active Substance: PANCRELIPASE AMYLASE\PANCRELIPASE LIPASE\PANCRELIPASE PROTEASE
     Indication: Steatorrhoea
     Dosage: 100K,
     Route: 065
  7. CREON [Suspect]
     Active Substance: PANCRELIPASE AMYLASE\PANCRELIPASE LIPASE\PANCRELIPASE PROTEASE
     Dosage: 5X35K
     Route: 065
  8. IMODIUM [Suspect]
     Active Substance: LOPERAMIDE HYDROCHLORIDE
     Indication: Diarrhoea
     Dosage: 2 CAPSULES
     Route: 048
  9. IMODIUM [Suspect]
     Active Substance: LOPERAMIDE HYDROCHLORIDE
     Dosage: 1 CAPSULE
     Route: 048
  10. CIPRO [Concomitant]
     Active Substance: CIPROFLOXACIN HYDROCHLORIDE
     Dosage: 20K
  11. NEXIUM [Concomitant]
     Active Substance: ESOMEPRAZOLE MAGNESIUM
  12. TOBI [Concomitant]
     Active Substance: TOBRAMYCIN
     Dosage: UNK
  13. SYMBICORT [Concomitant]
     Active Substance: BUDESONIDE\FORMOTEROL FUMARATE DIHYDRATE
     Dosage: UNK

REACTIONS (29)
  - Gastrointestinal disorder [Recovering/Resolving]
  - Brain fog [Not Recovered/Not Resolved]
  - Anxiety [Recovering/Resolving]
  - Lethargy [Not Recovered/Not Resolved]
  - Fatigue [Unknown]
  - Steatorrhoea [Not Recovered/Not Resolved]
  - Impaired quality of life [Unknown]
  - Taste disorder [Unknown]
  - Photosensitivity reaction [Unknown]
  - Weight decreased [Not Recovered/Not Resolved]
  - Feeling abnormal [Unknown]
  - Clumsiness [Not Recovered/Not Resolved]
  - Abdominal distension [Recovering/Resolving]
  - Haemoptysis [Not Recovered/Not Resolved]
  - Lung disorder [Unknown]
  - Cough [Unknown]
  - Malabsorption [Unknown]
  - Increased viscosity of bronchial secretion [Unknown]
  - Sputum discoloured [Unknown]
  - Dehydration [Unknown]
  - Pancreatic failure [Unknown]
  - Diarrhoea [Not Recovered/Not Resolved]
  - Nightmare [Unknown]
  - Somnolence [Unknown]
  - Abnormal dreams [Unknown]
  - General physical health deterioration [Unknown]
  - Palpitations [Unknown]
  - Gastrointestinal tract irritation [Unknown]
  - Derealisation [Recovering/Resolving]

NARRATIVE: CASE EVENT DATE: 20230101
